FAERS Safety Report 8976455 (Version 1)
Quarter: 2012Q4

REPORT INFORMATION
  Report Type: Report from Study
  Country: DE (occurrence: DE)
  Receive Date: 20121219
  Receipt Date: 20121219
  Transmission Date: 20130627
  Serious: Yes (Hospitalization)
  Sender: FDA-Public Use
  Company Number: DE-BAXTER-2012BAX027176

PATIENT
  Age: 64 Year
  Sex: Female
  Weight: 123 kg

DRUGS (3)
  1. ENDOXAN 1G [Suspect]
     Indication: BREAST CANCER
     Route: 042
     Dates: start: 20090616
  2. TRASTUZUMAB [Suspect]
     Indication: BREAST CANCER
     Route: 042
     Dates: start: 20090616
  3. EPIRUBICIN [Suspect]
     Indication: BREAST CANCER
     Route: 042
     Dates: start: 20090616

REACTIONS (3)
  - Neutropenia [Recovered/Resolved]
  - Pulmonary embolism [Recovered/Resolved]
  - Headache [Not Recovered/Not Resolved]
